FAERS Safety Report 8380348 (Version 2)
Quarter: 2013Q1

REPORT INFORMATION
  Report Type: Report from Study
  Country: US (occurrence: US)
  Receive Date: 20120129
  Receipt Date: 20130128
  Transmission Date: 20140127
  Serious: No
  Sender: FDA-Public Use
  Company Number: US-ABBOTT-11P-163-0707461-00

PATIENT
  Age: 59 Year
  Sex: Male

DRUGS (27)
  1. HUMIRA 40 MG/0.8 ML PEN [Suspect]
     Indication: RHEUMATOID ARTHRITIS
     Dates: start: 20110130
  2. HUMIRA 40 MG/0.8 ML PEN [Suspect]
     Indication: OSTEOARTHRITIS
  3. METHOTREXATE [Concomitant]
     Indication: RHEUMATOID ARTHRITIS
     Dates: start: 2010
  4. FOLIC ACID [Concomitant]
     Indication: VITAMIN SUPPLEMENTATION
  5. LEFLUNOMIDE [Concomitant]
     Indication: RHEUMATOID ARTHRITIS
  6. MIRTAZAPINE [Concomitant]
     Indication: DEPRESSION
     Dosage: AT BEDTIME
  7. MIRTAZAPINE [Concomitant]
     Indication: INSOMNIA
  8. TEMAZEPAM [Concomitant]
     Indication: INSOMNIA
  9. TRAZODONE [Concomitant]
     Indication: INSOMNIA
     Dosage: 1/2 TAB HS SLEEP
  10. LISINOPRIL [Concomitant]
     Indication: HYPERTENSION
     Dosage: DAILY
  11. LEVOTHYROXINE [Concomitant]
     Indication: HYPOTHYROIDISM
  12. TAMSULOSIN [Concomitant]
     Indication: URINARY RETENTION
  13. MULTIVITAMINS [Concomitant]
     Indication: VITAMIN SUPPLEMENTATION
     Dosage: Q AM
  14. ASPIRIN [Concomitant]
     Indication: PRODUCT USED FOR UNKNOWN INDICATION
  15. VITAMIN D [Concomitant]
     Indication: VITAMIN SUPPLEMENTATION
  16. LIOTHYRONINE [Concomitant]
     Indication: HYPOTHYROIDISM
  17. HYDROCODONE [Concomitant]
     Indication: ARTHRALGIA
     Dosage: 10/325 MG PRN
  18. TRAMADOL [Concomitant]
     Indication: PAIN
  19. ADDERALL [Concomitant]
     Indication: ATTENTION DEFICIT/HYPERACTIVITY DISORDER
  20. FLOMAX [Concomitant]
     Indication: PRODUCT USED FOR UNKNOWN INDICATION
     Dosage: Q AM
  21. PREDNISONE [Concomitant]
     Indication: PRODUCT USED FOR UNKNOWN INDICATION
     Dosage: DAILY
  22. PRILOSEC [Concomitant]
     Indication: DYSPEPSIA
  23. B-COMPLEX [Concomitant]
     Indication: PRODUCT USED FOR UNKNOWN INDICATION
     Dosage: DAILY
  24. FIBERCON [Concomitant]
     Indication: CONSTIPATION
  25. PRISTIQ [Concomitant]
     Indication: ANTIDEPRESSANT THERAPY
  26. ALPRAZOLAM [Concomitant]
     Indication: ANXIETY
     Dosage: PRN
  27. METOCLOPRAMIDE [Concomitant]
     Indication: PRODUCT USED FOR UNKNOWN INDICATION
     Dosage: PRN

REACTIONS (5)
  - Fatigue [Not Recovered/Not Resolved]
  - Nausea [Recovering/Resolving]
  - Rheumatoid arthritis [Unknown]
  - Arthralgia [Unknown]
  - Drug effect decreased [Unknown]
